FAERS Safety Report 4411461-6 (Version None)
Quarter: 2004Q2

REPORT INFORMATION
  Report Type: 
  Country: None (occurrence: None)
  Receive Date: 20040630
  Receipt Date: 20040525
  Transmission Date: 20050107
  Serious: No
  Sender: FDA-Public Use
  Company Number: 04P-163-0261974-00

PATIENT
  Sex: Male
  Weight: 102.0593 kg

DRUGS (12)
  1. HUMIRA [Suspect]
     Indication: RHEUMATOID ARTHRITIS
     Dosage: 40 MG, SUBCUTANEOUS
     Route: 058
     Dates: start: 20030101
  2. METHOTREXATE [Concomitant]
  3. VALSARTAN [Concomitant]
  4. DIGOXIN [Concomitant]
  5. LABETALOL HCL [Concomitant]
  6. TAMSULOSIN HYDROCHLORIDE [Concomitant]
  7. CRESTOR [Concomitant]
  8. TOCOPHEROL CONCENTRATE CAP [Concomitant]
  9. RIBOFLAVIN TAB [Concomitant]
  10. CYANOCOBALAMIN [Concomitant]
  11. FOLIC ACID [Concomitant]
  12. ASPIRIN [Concomitant]

REACTIONS (1)
  - RASH PRURITIC [None]
